FAERS Safety Report 8492726-8 (Version None)
Quarter: 2012Q2

REPORT INFORMATION
  Report Type: 
  Country: None (occurrence: None)
  Receive Date: 20120629
  Receipt Date: 20120629
  Transmission Date: 20120825
  Serious: Yes (Disabling, Other)
  Sender: FDA-Public Use
  Company Number: None

PATIENT
  Age: 19 Year
  Sex: Female
  Weight: 58.0604 kg

DRUGS (1)
  1. NORGESTIMATE AND ETHINYL ESTRADIOL [Suspect]
     Indication: CONTRACEPTION
     Dosage: 1 PILL EVERY DAY PO
     Route: 048
     Dates: start: 20111015, end: 20120228

REACTIONS (3)
  - PRODUCT QUALITY ISSUE [None]
  - PRODUCT COMMINGLING [None]
  - AMENORRHOEA [None]
